FAERS Safety Report 22528265 (Version 1)
Quarter: 2023Q2

REPORT INFORMATION
  Report Type: Spontaneous
  Country: RU (occurrence: RU)
  Receive Date: 20230607
  Receipt Date: 20230607
  Transmission Date: 20230722
  Serious: Yes (Other)
  Sender: FDA-Public Use
  Company Number: RU-ABBVIE-5279232

PATIENT
  Age: 40 Year
  Weight: 69 kg

DRUGS (2)
  1. LOPINAVIR\RITONAVIR [Suspect]
     Active Substance: LOPINAVIR\RITONAVIR
     Indication: HIV infection
     Dosage: 1000 MILLIGRAM,  FORM STRENGTH: 250 MILLIGRAM
     Route: 048
     Dates: start: 20150427, end: 20190927
  2. LAMIVUDINE\ZIDOVUDINE [Concomitant]
     Active Substance: LAMIVUDINE\ZIDOVUDINE
     Indication: HIV infection

REACTIONS (3)
  - Lipoatrophy [Recovering/Resolving]
  - Fat tissue decreased [Recovering/Resolving]
  - Hypertrophy [Unknown]

NARRATIVE: CASE EVENT DATE: 20190901
